FAERS Safety Report 12421600 (Version 1)
Quarter: 2016Q2

REPORT INFORMATION
  Report Type: Spontaneous
  Country: BE (occurrence: BE)
  Receive Date: 20160531
  Receipt Date: 20160531
  Transmission Date: 20160815
  Serious: Yes (Hospitalization)
  Sender: FDA-Public Use
  Company Number: BE-MYLANLABS-2016M1022254

PATIENT

DRUGS (5)
  1. PALIPERIDONE. [Suspect]
     Active Substance: PALIPERIDONE
     Indication: SCHIZOPHRENIA
     Dosage: 6 MG/DAY
     Route: 048
     Dates: start: 20141223, end: 20150108
  2. OLANZAPINE. [Suspect]
     Active Substance: OLANZAPINE
     Indication: SCHIZOPHRENIA
     Dosage: 10 MG/DAY
     Route: 048
     Dates: end: 20150211
  3. GANCICLOVIR. [Suspect]
     Active Substance: GANCICLOVIR
     Indication: PRODUCT USED FOR UNKNOWN INDICATION
     Route: 065
  4. PALIPERIDONE. [Suspect]
     Active Substance: PALIPERIDONE
     Indication: SCHIZOPHRENIA
     Dosage: 150MG AND A SECOND DOSE OF 100 MG
     Route: 065
     Dates: start: 20150108
  5. CLORAZEPATE DIPOTASSIUM. [Concomitant]
     Active Substance: CLORAZEPATE DIPOTASSIUM
     Indication: SCHIZOPHRENIA
     Dosage: 5 MG/DAY
     Route: 048

REACTIONS (5)
  - Cytomegalovirus enterocolitis [Unknown]
  - Haemodynamic instability [Unknown]
  - Toxic epidermal necrolysis [Unknown]
  - Acute kidney injury [Unknown]
  - Septic shock [Unknown]

NARRATIVE: CASE EVENT DATE: 201502
